FAERS Safety Report 15807744 (Version 1)
Quarter: 2019Q1

REPORT INFORMATION
  Report Type: Spontaneous
  Country: BE (occurrence: BE)
  Receive Date: 20190110
  Receipt Date: 20190110
  Transmission Date: 20190417
  Serious: Yes (Other)
  Sender: FDA-Public Use
  Company Number: BE-PFIZER INC-2019009562

PATIENT
  Sex: Female

DRUGS (7)
  1. ASAFLOW [Concomitant]
     Active Substance: ASPIRIN
     Dosage: 80 MG, UNK
  2. CEDOCARD [Concomitant]
     Active Substance: ISOSORBIDE DINITRATE
     Dosage: 5 MG, AS NEEDED
  3. TOTALIP [Concomitant]
     Active Substance: ATORVASTATIN
     Dosage: 10 MG, UNK
  4. NOBITEN [NEBIVOLOL HYDROCHLORIDE] [Concomitant]
     Dosage: 5 MG, UNK
  5. AMLODIPINE BESILATE [Suspect]
     Active Substance: AMLODIPINE BESYLATE
     Dosage: 5 MG, UNK
  6. COZAAR PLUS [Suspect]
     Active Substance: HYDROCHLOROTHIAZIDE\LOSARTAN POTASSIUM
     Dosage: 100 MG / 12.5 MG
  7. CORUNO [Concomitant]
     Active Substance: MOLSIDOMINE
     Dosage: 16 MG, UNK

REACTIONS (3)
  - Rash pruritic [Unknown]
  - Dermatitis bullous [Unknown]
  - Contusion [Unknown]

NARRATIVE: CASE EVENT DATE: 2018
